FAERS Safety Report 13532770 (Version 1)
Quarter: 2017Q2

REPORT INFORMATION
  Report Type: Spontaneous
  Country: US (occurrence: US)
  Receive Date: 20170510
  Receipt Date: 20170510
  Transmission Date: 20170830
  Serious: No
  Sender: FDA-Public Use
  Company Number: US-009507513-1705USA001176

PATIENT
  Age: 35 Year
  Sex: Female
  Weight: 46.9 kg

DRUGS (1)
  1. ETONOGESTREL IMPLANT- UNKNOWN [Suspect]
     Active Substance: ETONOGESTREL
     Indication: PRODUCT USED FOR UNKNOWN INDICATION
     Dosage: 1 DF, UNK
     Route: 059
     Dates: end: 20170419

REACTIONS (5)
  - Complication of device removal [Recovered/Resolved]
  - Feeling abnormal [Unknown]
  - Headache [Unknown]
  - Device difficult to use [Recovered/Resolved]
  - Complication associated with device [Recovered/Resolved]

NARRATIVE: CASE EVENT DATE: 2017
